FAERS Safety Report 17679011 (Version 2)
Quarter: 2020Q2

REPORT INFORMATION
  Report Type: Report from Study
  Country: None (occurrence: US)
  Receive Date: 20200417
  Receipt Date: 20200430
  Transmission Date: 20200714
  Serious: Yes (Hospitalization, Other)
  Sender: FDA-Public Use
  Company Number: US-ABBVIE-20K-163-3366340-00

PATIENT
  Age: 53 Year
  Sex: Female

DRUGS (1)
  1. SKYRIZI [Suspect]
     Active Substance: RISANKIZUMAB-RZAA
     Indication: PSORIASIS
     Route: 058
     Dates: start: 20200410

REACTIONS (5)
  - Coronavirus infection [Not Recovered/Not Resolved]
  - Vision blurred [Recovered/Resolved]
  - Fatigue [Recovered/Resolved]
  - Cholelithiasis [Not Recovered/Not Resolved]
  - Dizziness [Recovered/Resolved]

NARRATIVE: CASE EVENT DATE: 202004
